FAERS Safety Report 24160225 (Version 1)
Quarter: 2024Q3

REPORT INFORMATION
  Report Type: Spontaneous
  Country: CN (occurrence: CN)
  Receive Date: 20240801
  Receipt Date: 20240801
  Transmission Date: 20241016
  Serious: Yes (Other)
  Sender: BEIGENE
  Company Number: CN-ROCHE-3526406

PATIENT

DRUGS (6)
  1. TISLELIZUMAB [Suspect]
     Active Substance: TISLELIZUMAB
     Indication: Small cell lung cancer extensive stage
  2. PLATINUM [Suspect]
     Active Substance: PLATINUM
     Indication: Small cell lung cancer extensive stage
     Dosage: UNK
  3. ETOPOSIDE [Suspect]
     Active Substance: ETOPOSIDE
     Indication: Small cell lung cancer extensive stage
  4. SERPLULIMAB [Suspect]
     Active Substance: SERPLULIMAB
     Indication: Small cell lung cancer extensive stage
     Dosage: UNK
  5. DURVALUMAB [Suspect]
     Active Substance: DURVALUMAB
     Indication: Small cell lung cancer extensive stage
     Dosage: UNK
  6. ATEZOLIZUMAB [Suspect]
     Active Substance: ATEZOLIZUMAB
     Indication: Small cell lung cancer extensive stage

REACTIONS (13)
  - Hypothyroidism [Unknown]
  - Pneumonitis [Unknown]
  - Nausea [Unknown]
  - Decreased appetite [Unknown]
  - Radiation oesophagitis [Unknown]
  - Anaemia [Unknown]
  - Thrombocytopenia [Unknown]
  - Myocarditis [Unknown]
  - Neutropenia [Unknown]
  - Diarrhoea [Unknown]
  - Constipation [Unknown]
  - Leukopenia [Unknown]
  - Atrial fibrillation [Unknown]
